FAERS Safety Report 16717410 (Version 1)
Quarter: 2019Q3

REPORT INFORMATION
  Report Type: Spontaneous
  Country: ES (occurrence: ES)
  Receive Date: 20190819
  Receipt Date: 20190819
  Transmission Date: 20191005
  Serious: Yes (Other)
  Sender: FDA-Public Use
  Company Number: PHHY2019ES147322

PATIENT
  Age: 4 Year
  Sex: Male
  Weight: 11.5 kg

DRUGS (4)
  1. DEPAKINE [Concomitant]
     Active Substance: VALPROATE SODIUM
     Indication: PRODUCT USED FOR UNKNOWN INDICATION
     Dosage: 1 ML, Q8H
     Route: 065
     Dates: start: 20180828
  2. SALBUTAMOL ALDO UNION [Concomitant]
     Indication: PRODUCT USED FOR UNKNOWN INDICATION
     Dosage: 3 ML, Q8H
     Route: 065
     Dates: start: 20170616
  3. KEPPRA [Concomitant]
     Active Substance: LEVETIRACETAM
     Indication: PRODUCT USED FOR UNKNOWN INDICATION
     Dosage: 5 ML, Q12H
     Route: 065
     Dates: start: 20190616
  4. OMEPRAZOL [Suspect]
     Active Substance: OMEPRAZOLE
     Indication: GASTROOESOPHAGEAL REFLUX DISEASE
     Dosage: 5 ML, QD
     Route: 048
     Dates: start: 20190326, end: 20190617

REACTIONS (2)
  - Hypertrichosis [Unknown]
  - Product formulation issue [Recovered/Resolved]

NARRATIVE: CASE EVENT DATE: 20190427
